FAERS Safety Report 8078383-3 (Version None)
Quarter: 2012Q1

REPORT INFORMATION
  Report Type: 
  Country: None (occurrence: None)
  Receive Date: 20120127
  Receipt Date: 20110301
  Transmission Date: 20120608
  Serious: Yes (Hospitalization, Other)
  Sender: FDA-Public Use
  Company Number: US-ABBOTT-10P-163-0675481-00

PATIENT
  Sex: Female
  Weight: 83.99 kg

DRUGS (9)
  1. GLYBURIDE [Concomitant]
     Indication: DIABETES MELLITUS
  2. PLAQUENIL [Concomitant]
     Indication: RHEUMATOID ARTHRITIS
  3. LANTUS INSULN [Concomitant]
     Indication: DIABETES MELLITUS
  4. HUMIRA [Suspect]
     Indication: RHEUMATOID ARTHRITIS
     Dates: start: 19990101, end: 20100528
  5. COUMADIN [Concomitant]
     Indication: THROMBOSIS
  6. NEXIUM [Concomitant]
     Indication: DYSPEPSIA
  7. METFORMIN HCL [Concomitant]
     Indication: DIABETES MELLITUS
  8. SYNTHROID [Concomitant]
     Indication: PRODUCT USED FOR UNKNOWN INDICATION
  9. METOPROLOL TARTRATE [Concomitant]
     Indication: HYPERTENSION

REACTIONS (2)
  - PNEUMONIA [None]
  - PULMONARY FIBROSIS [None]
